FAERS Safety Report 23314133 (Version 1)
Quarter: 2023Q4

REPORT INFORMATION
  Report Type: Report from Study
  Country: US (occurrence: US)
  Receive Date: 20231219
  Receipt Date: 20231219
  Transmission Date: 20240109
  Serious: Yes (Hospitalization)
  Sender: FDA-Public Use
  Company Number: US-MYLANLABS-2023M1134125

PATIENT
  Age: 70 Year
  Sex: Male

DRUGS (5)
  1. LINEZOLID [Suspect]
     Active Substance: LINEZOLID
     Indication: Tuberculosis
     Dosage: 600 MILLIGRAM, QD (RECEIVED UNDER BPAL REGIMEN)
     Route: 048
  2. LINEZOLID [Suspect]
     Active Substance: LINEZOLID
     Dosage: 600 MILLIGRAM, 3XW (RECEIVED THREE TIMES A WEEK, UNDER BPAL REGIMEN)
     Route: 048
  3. BEDAQUILINE [Concomitant]
     Active Substance: BEDAQUILINE
     Indication: Tuberculosis
     Dosage: 400 MILLIGRAM, 3XW (RECEIVED AT THREE TIMES A WEEK, UNDER BPAL REGIMEN)
     Route: 048
  4. BEDAQUILINE [Concomitant]
     Active Substance: BEDAQUILINE
     Dosage: 200 MILLIGRAM, 3XW (RECEIVED AT THREE TIMES A WEEK, UNDER BPAL REGIMEN)
     Route: 048
  5. PRETOMANID [Concomitant]
     Active Substance: PRETOMANID
     Indication: Tuberculosis
     Dosage: 200 MILLIGRAM, QD (RECEIVED UNDER BPAL REGIMEN)
     Route: 048

REACTIONS (4)
  - Hypertransaminasaemia [Unknown]
  - Pancreatitis [Unknown]
  - Anaemia [Unknown]
  - Drug level increased [Unknown]
